FAERS Safety Report 5353577-6 (Version None)
Quarter: 2007Q2

REPORT INFORMATION
  Report Type: 
  Country: None (occurrence: None)
  Receive Date: 20070612
  Receipt Date: 20070604
  Transmission Date: 20071010
  Serious: Yes (Life-Threatening)
  Sender: FDA-Public Use
  Company Number: DE-NOVOPROD-261265

PATIENT
  Sex: Male
  Weight: 81 kg

DRUGS (1)
  1. NOVOSEVEN [Suspect]
     Indication: POST PROCEDURAL HAEMORRHAGE
     Dosage: 1 DOSE
     Route: 042
     Dates: start: 20070301

REACTIONS (1)
  - CARDIAC TAMPONADE [None]
